FAERS Safety Report 10511378 (Version 4)
Quarter: 2014Q4

REPORT INFORMATION
  Report Type: Report from Study
  Country: US (occurrence: US)
  Receive Date: 20141010
  Receipt Date: 20141229
  Transmission Date: 20150528
  Serious: Yes (Other)
  Sender: FDA-Public Use
  Company Number: US-ARIAD PHARMACEUTICALS, INC-2014US003625

PATIENT
  Age: 80 Year
  Sex: Female
  Weight: 50 kg

DRUGS (22)
  1. PONATINIB [Suspect]
     Active Substance: PONATINIB
     Dosage: 30 MG, QD
     Route: 048
     Dates: start: 20131012, end: 20131031
  2. HYDROCORTISONE. [Concomitant]
     Active Substance: HYDROCORTISONE
     Indication: HAEMORRHOIDS
     Dosage: UNK
     Route: 061
     Dates: start: 20100225
  3. MICARDIS [Concomitant]
     Active Substance: TELMISARTAN
     Indication: HYPERTENSION
     Dosage: UNK
     Route: 048
  4. MS CONTIN [Concomitant]
     Active Substance: MORPHINE SULFATE
     Indication: BONE PAIN
     Dosage: UNK
     Route: 048
  5. BISACODYL. [Concomitant]
     Active Substance: BISACODYL
     Indication: CONSTIPATION
     Dosage: UNK
     Route: 048
     Dates: start: 201106
  6. PONATINIB [Suspect]
     Active Substance: PONATINIB
     Indication: CHRONIC MYELOID LEUKAEMIA
     Dosage: 45 MG, QD
     Route: 048
     Dates: start: 20110331, end: 20131011
  7. PONATINIB [Suspect]
     Active Substance: PONATINIB
     Dosage: 15 MG, QD
     Route: 048
     Dates: start: 20131117, end: 20131130
  8. PONATINIB [Suspect]
     Active Substance: PONATINIB
     Dosage: 15 MG, QD
     Route: 048
     Dates: start: 20131226, end: 201404
  9. TYLENOL [Concomitant]
     Active Substance: ACETAMINOPHEN
     Indication: BACK PAIN
     Dosage: UNK
     Route: 048
  10. NEXIUM [Concomitant]
     Active Substance: ESOMEPRAZOLE MAGNESIUM
     Indication: GASTROOESOPHAGEAL REFLUX PROPHYLAXIS
     Dosage: UNK
     Route: 048
  11. METAMUCIL [Concomitant]
     Active Substance: PLANTAGO SEED
     Indication: CONSTIPATION
     Dosage: UNK
     Route: 048
     Dates: start: 20120524
  12. ASPRIN [Concomitant]
     Active Substance: ASPIRIN
     Indication: PLATELET AGGREGATION INHIBITION
     Dosage: UNK
     Route: 048
     Dates: start: 20121115
  13. PONATINIB [Suspect]
     Active Substance: PONATINIB
     Dosage: 30 MG, QD
     Route: 048
     Dates: start: 20140501, end: 20140817
  14. PONATINIB [Suspect]
     Active Substance: PONATINIB
     Dosage: 30 MG, QD
     Route: 048
     Dates: start: 20140819, end: 20140823
  15. HYDROCODONE [Concomitant]
     Active Substance: HYDROCODONE
     Indication: PROPHYLAXIS
     Dosage: UNK
     Route: 048
     Dates: start: 20110406
  16. CORTICOSTEROID NOS [Concomitant]
     Active Substance: CORTICOSTEROID NOS
     Indication: SCIATICA
     Dosage: UNK
     Route: 008
     Dates: start: 20130131
  17. PONATINIB [Suspect]
     Active Substance: PONATINIB
     Dosage: 30 MG, QD
     Route: 048
     Dates: start: 20141002
  18. GAS-X [Concomitant]
     Active Substance: DIMETHICONE
     Indication: FLATULENCE
     Dosage: UNK
     Route: 048
     Dates: start: 20090403
  19. LEVOXYL [Concomitant]
     Active Substance: LEVOTHYROXINE SODIUM
     Indication: HYPOTHYROIDISM
     Dosage: UNK
     Route: 048
     Dates: start: 20081218
  20. VITAMIN B12 [Concomitant]
     Active Substance: CYANOCOBALAMIN
     Indication: VITAMIN SUPPLEMENTATION
     Dosage: UNK
     Route: 058
     Dates: start: 20110121
  21. MIRALAX [Concomitant]
     Active Substance: POLYETHYLENE GLYCOL 3350
     Indication: CONSTIPATION
     Dosage: UNK
     Route: 048
     Dates: start: 20120524
  22. PONATINIB [Suspect]
     Active Substance: PONATINIB
     Dosage: 15 MG, QD
     Route: 048
     Dates: start: 20131205, end: 20131224

REACTIONS (1)
  - Colon cancer [Recovered/Resolved]

NARRATIVE: CASE EVENT DATE: 20140819
